FAERS Safety Report 11244165 (Version 2)
Quarter: 2015Q3

REPORT INFORMATION
  Report Type: Spontaneous
  Country: US (occurrence: US)
  Receive Date: 20150707
  Receipt Date: 20150820
  Transmission Date: 20151125
  Serious: No
  Sender: FDA-Public Use
  Company Number: US-009507513-1506USA004747

PATIENT
  Age: 24 Year
  Sex: Female
  Weight: 129.71 kg

DRUGS (2)
  1. NEXPLANON [Suspect]
     Active Substance: ETONOGESTREL
     Dosage: UNK
     Route: 059
     Dates: start: 20150605, end: 20150605
  2. NEXPLANON [Suspect]
     Active Substance: ETONOGESTREL
     Dosage: UNK
     Route: 059
     Dates: start: 2015

REACTIONS (3)
  - Device expulsion [Recovered/Resolved]
  - No adverse event [Unknown]
  - Product quality issue [Unknown]

NARRATIVE: CASE EVENT DATE: 20150605
